FAERS Safety Report 16550170 (Version 1)
Quarter: 2019Q3

REPORT INFORMATION
  Report Type: Spontaneous
  Country: US (occurrence: US)
  Receive Date: 20190709
  Receipt Date: 20190709
  Transmission Date: 20191004
  Serious: Yes (Disabling, Other)
  Sender: FDA-Public Use
  Company Number: None

PATIENT
  Age: 22 Year
  Sex: Male
  Weight: 72 kg

DRUGS (2)
  1. MULTIVITAMIN [Concomitant]
     Active Substance: VITAMINS
  2. FINASTERIDE 1 MG [Suspect]
     Active Substance: FINASTERIDE
     Indication: ANDROGENETIC ALOPECIA
     Dates: start: 20170210, end: 20170301

REACTIONS (7)
  - Depression [None]
  - Erectile dysfunction [None]
  - Fatigue [None]
  - Ejaculation disorder [None]
  - Loss of libido [None]
  - Myalgia [None]
  - Sexual dysfunction [None]

NARRATIVE: CASE EVENT DATE: 20170320
